FAERS Safety Report 8947276 (Version 1)
Quarter: 2012Q4

REPORT INFORMATION
  Report Type: 
  Country: GB (occurrence: GB)
  Receive Date: 20121205
  Receipt Date: 20121205
  Transmission Date: 20130627
  Serious: Yes (Other)
  Sender: FDA-Public Use
  Company Number: GB-009507513-1211GBR012769

PATIENT
  Age: 35 Year
  Sex: Female
  Weight: 78 kg

DRUGS (8)
  1. MIRTAZAPINE [Suspect]
     Indication: DEPRESSION
     Dosage: 15 mg, UNK
     Route: 048
     Dates: start: 20120921, end: 20121021
  2. MIRTAZAPINE [Suspect]
     Indication: ANXIETY
  3. SERTRALINE HYDROCHLORIDE [Suspect]
     Indication: DEPRESSION
     Dosage: UNK
     Route: 048
     Dates: start: 20120828, end: 20121014
  4. SERTRALINE HYDROCHLORIDE [Suspect]
     Indication: ANXIETY
  5. ANTIOXIDANTS (UNSPECIFIED) [Concomitant]
     Indication: ROUTINE HEALTH MAINTENANCE
     Route: 048
  6. ECHINACEA (UNSPECIFIED) [Concomitant]
     Indication: IMMUNISATION
     Route: 048
  7. MILK THISTLE [Concomitant]
     Indication: DETOXIFICATION
     Route: 048
  8. SPIRULINA [Concomitant]
     Route: 048

REACTIONS (7)
  - Alanine aminotransferase increased [Recovering/Resolving]
  - Blood alkaline phosphatase increased [Recovering/Resolving]
  - Drug-induced liver injury [Recovering/Resolving]
  - Gamma-glutamyltransferase abnormal [Recovering/Resolving]
  - Liver disorder [Recovering/Resolving]
  - Inflammation [Recovering/Resolving]
  - Liver function test abnormal [Recovering/Resolving]
